FAERS Safety Report 5554099-X (Version None)
Quarter: 2007Q4

REPORT INFORMATION
  Report Type: 
  Country: None (occurrence: None)
  Receive Date: 20071130
  Receipt Date: 20070828
  Transmission Date: 20080405
  Serious: Yes (Hospitalization)
  Sender: FDA-Public Use
  Company Number: US200708001187

PATIENT
  Age: 60 Year
  Sex: Male

DRUGS (9)
  1. BYETTA [Suspect]
     Indication: TYPE 2 DIABETES MELLITUS
     Dosage: 1 MONTH, SUBCUTANEOUS, 10 UG, 3 MONTHS, SUBCUTANEOUS
     Route: 058
     Dates: start: 20070416, end: 20070514
  2. BYETTA [Suspect]
     Indication: TYPE 2 DIABETES MELLITUS
     Dosage: 1 MONTH, SUBCUTANEOUS, 10 UG, 3 MONTHS, SUBCUTANEOUS
     Route: 058
     Dates: start: 20070514, end: 20070701
  3. METFORMIN HCL [Concomitant]
  4. LANTUS [Concomitant]
  5. MULTIVITAMIN [Concomitant]
  6. TRICOR [Concomitant]
  7. UNIRETIC (HYDROCHLOROTHIAZIDE, MOEXIPRIL HYDROCHLORIDE) [Concomitant]
  8. ASPIRIN [Concomitant]
  9. TENORETIC 100 [Concomitant]

REACTIONS (4)
  - AGITATION [None]
  - ANXIETY [None]
  - PANCREATITIS ACUTE [None]
  - WEIGHT DECREASED [None]
